FAERS Safety Report 22301285 (Version 2)
Quarter: 2024Q2

REPORT INFORMATION
  Report Type: Spontaneous
  Country: US (occurrence: US)
  Receive Date: 20230509
  Receipt Date: 20240610
  Transmission Date: 20240716
  Serious: No
  Sender: FDA-Public Use
  Company Number: US-SA-SAC20230508001057

PATIENT
  Age: 26 Year
  Sex: Female

DRUGS (1)
  1. DUPIXENT [Suspect]
     Active Substance: DUPILUMAB
     Indication: Dermatitis atopic
     Dosage: 300 MG, QOW
     Route: 058
     Dates: start: 20221012

REACTIONS (4)
  - Depression [Not Recovered/Not Resolved]
  - Sleep disorder [Recovering/Resolving]
  - Dermatitis atopic [Unknown]
  - Therapeutic response shortened [Unknown]
